FAERS Safety Report 4350333-2 (Version None)
Quarter: 2004Q2

REPORT INFORMATION
  Report Type: 
  Country: None (occurrence: None)
  Receive Date: 20040427
  Receipt Date: 20030721
  Transmission Date: 20050107
  Serious: No
  Sender: FDA-Public Use
  Company Number: 000602

PATIENT
  Age: 66 Year
  Sex: Male

DRUGS (4)
  1. ZEVALIN [Suspect]
     Indication: NON-HODGKIN'S LYMPHOMA
     Dosage: SEE IMAGE
     Dates: start: 20030318, end: 20030318
  2. ZEVALIN [Suspect]
     Dosage: SEE IMAGE
     Dates: start: 20030325, end: 20030325
  3. .. [Suspect]
  4. ZEVALIN [Suspect]
     Dosage: 0.3 MCI/KG, Y-[90] ZEVALIN, INTRAVENOUS
     Route: 042
     Dates: start: 20030325, end: 20030325

REACTIONS (2)
  - DISEASE PROGRESSION [None]
  - PANCYTOPENIA [None]
